FAERS Safety Report 9215137 (Version 2)
Quarter: 2013Q2

REPORT INFORMATION
  Report Type: Report from Study
  Country: NL (occurrence: NL)
  Receive Date: 20130405
  Receipt Date: 20130416
  Transmission Date: 20140414
  Serious: Yes (Death, Hospitalization)
  Sender: FDA-Public Use
  Company Number: PHHY2013NL033289

PATIENT
  Sex: Female

DRUGS (11)
  1. ACLASTA [Suspect]
     Indication: OSTEOPOROSIS
     Dosage: 5 MG
     Route: 042
     Dates: start: 201005
  2. ACLASTA [Suspect]
     Dosage: 5 MG
     Route: 042
     Dates: start: 20110422
  3. ACLASTA [Suspect]
     Dosage: 5 MG
     Route: 042
     Dates: start: 20120427
  4. BUMETANIDE [Concomitant]
     Dosage: 2 DF, BID
  5. CYTOMEL [Concomitant]
     Dosage: 25 UKN, QD
  6. CARVEDILOL [Concomitant]
     Dosage: 6.25 UKN, QD
  7. HALDOL [Concomitant]
     Dosage: 0.2 UKN, QD
  8. DIGOXINE [Concomitant]
     Dosage: 0.125 UKN, QD
     Dates: start: 201301
  9. SPIRONOLACTONE [Concomitant]
     Dosage: UNK UKN, UNK
     Dates: start: 201301
  10. X-PREP [Concomitant]
     Dosage: UNK UKN, UNK
     Dates: start: 201301
  11. MOVICOLON [Concomitant]
     Dosage: UNK UKN, UNK
     Dates: start: 201301

REACTIONS (1)
  - Death [Fatal]
